FAERS Safety Report 13911471 (Version 1)
Quarter: 2017Q3

REPORT INFORMATION
  Report Type: Spontaneous
  Country: US (occurrence: US)
  Receive Date: 20170828
  Receipt Date: 20170828
  Transmission Date: 20171127
  Serious: No
  Sender: FDA-Public Use
  Company Number: US-ROCHE-1141623

PATIENT
  Sex: Male
  Weight: 23 kg

DRUGS (1)
  1. NUTROPIN [Suspect]
     Active Substance: SOMATROPIN
     Indication: DWARFISM
     Route: 058
     Dates: start: 20010612

REACTIONS (5)
  - Respiratory tract infection viral [Recovered/Resolved]
  - Toothache [Unknown]
  - Pyrexia [Unknown]
  - Bronchitis bacterial [Recovered/Resolved]
  - Bone pain [Unknown]
